FAERS Safety Report 14479943 (Version 1)
Quarter: 2018Q1

REPORT INFORMATION
  Report Type: Spontaneous
  Country: US (occurrence: US)
  Receive Date: 20180201
  Receipt Date: 20180201
  Transmission Date: 20180509
  Serious: Yes (Other)
  Sender: FDA-Public Use
  Company Number: None

PATIENT

DRUGS (1)
  1. DOPAMINE [Suspect]
     Active Substance: DOPAMINE\DOPAMINE HYDROCHLORIDE

REACTIONS (5)
  - Injection site extravasation [None]
  - Hypotension [None]
  - Joint range of motion decreased [None]
  - Pain in extremity [None]
  - Swelling [None]
